FAERS Safety Report 5472979-0 (Version None)
Quarter: 2007Q4

REPORT INFORMATION
  Report Type: 
  Country: None (occurrence: None)
  Receive Date: 20071001
  Receipt Date: 20070125
  Transmission Date: 20080405
  Serious: No
  Sender: FDA-Public Use
  Company Number: US-ASTRAZENECA-2007UW01575

PATIENT
  Age: 77 Year
  Sex: Female
  Weight: 77.1 kg

DRUGS (6)
  1. ARIMIDEX [Suspect]
     Indication: BREAST CANCER
     Route: 048
  2. GLIPIZIDE [Concomitant]
  3. AVANDIA [Concomitant]
  4. CLINIPRIL [Concomitant]
  5. TOPROL-XL [Concomitant]
  6. REQUIP [Concomitant]

REACTIONS (4)
  - DIZZINESS [None]
  - FEELING ABNORMAL [None]
  - FEELING DRUNK [None]
  - NAUSEA [None]
